FAERS Safety Report 5576369-1 (Version None)
Quarter: 2007Q4

REPORT INFORMATION
  Report Type: 
  Country: None (occurrence: None)
  Receive Date: 20071228
  Receipt Date: 20071217
  Transmission Date: 20080405
  Serious: Yes (Hospitalization)
  Sender: FDA-Public Use
  Company Number: JP-BAYER-02/00388-JPN

PATIENT
  Age: 25 Year
  Sex: Female
  Weight: 40 kg

DRUGS (10)
  1. BETASERON [Suspect]
     Indication: MULTIPLE SCLEROSIS
     Dosage: TOTAL DAILY DOSE: 4 MIU
     Route: 058
     Dates: start: 20020213, end: 20020217
  2. BETASERON [Suspect]
     Dosage: TOTAL DAILY DOSE: 8 MIU
     Route: 058
     Dates: start: 20020219, end: 20020414
  3. MUCOSTA [Concomitant]
     Indication: PROPHYLAXIS AGAINST GASTROINTESTINAL ULCER
     Dosage: TOTAL DAILY DOSE: 300 MG
     Route: 048
  4. CYANOCOBALAMIN [Concomitant]
     Indication: NERVE INJURY
     Dosage: TOTAL DAILY DOSE: 1500 MG
     Route: 048
  5. GLAKAY [Concomitant]
     Indication: OSTEOPOROSIS
     Dosage: TOTAL DAILY DOSE: 45 MG
     Route: 048
  6. MEXITIL [Concomitant]
     Indication: HYPOAESTHESIA
     Dosage: TOTAL DAILY DOSE: 150 MG
     Route: 048
  7. DEPAS [Concomitant]
     Indication: AUTONOMIC NERVOUS SYSTEM IMBALANCE
     Dosage: TOTAL DAILY DOSE: 3 MG
     Route: 048
  8. GASTER-D [Concomitant]
     Indication: PROPHYLAXIS AGAINST GASTROINTESTINAL ULCER
     Dosage: TOTAL DAILY DOSE: 40 MG
     Route: 048
  9. ALFAROL [Concomitant]
     Indication: OSTEOPOROSIS PROPHYLAXIS
     Dosage: TOTAL DAILY DOSE: 0.5 ?G
     Route: 048
  10. BUP-4 [Concomitant]
     Indication: DYSURIA
     Dosage: TOTAL DAILY DOSE: 20 MG
     Route: 048

REACTIONS (15)
  - ALTERED STATE OF CONSCIOUSNESS [None]
  - CEREBRAL DISORDER [None]
  - CONFUSIONAL STATE [None]
  - DYSARTHRIA [None]
  - EXTENSOR PLANTAR RESPONSE [None]
  - HEADACHE [None]
  - HICCUPS [None]
  - INJECTION SITE REACTION [None]
  - MULTIPLE SCLEROSIS [None]
  - MUSCULAR WEAKNESS [None]
  - OPTIC NEURITIS [None]
  - PAPILLOEDEMA [None]
  - PYREXIA [None]
  - VISUAL ACUITY REDUCED [None]
  - VOMITING [None]
